FAERS Safety Report 4704853-9 (Version None)
Quarter: 2005Q3

REPORT INFORMATION
  Report Type: 
  Country: None (occurrence: None)
  Receive Date: 20050701
  Receipt Date: 20050621
  Transmission Date: 20060218
  Serious: Yes (Life-Threatening)
  Sender: FDA-Public Use
  Company Number: PT-ABBOTT-05P-130-0303923-00

PATIENT
  Sex: Female

DRUGS (7)
  1. KALETRA [Suspect]
     Indication: DRUG USE FOR UNKNOWN INDICATION
     Route: 048
     Dates: start: 20040420
  2. PAROXETINE HCL [Concomitant]
     Indication: DRUG USE FOR UNKNOWN INDICATION
  3. UNKNOWN [Concomitant]
     Indication: DRUG USE FOR UNKNOWN INDICATION
     Route: 048
     Dates: start: 20030701, end: 20050506
  4. ZIDOVUDINE [Concomitant]
     Indication: DRUG USE FOR UNKNOWN INDICATION
     Route: 048
     Dates: start: 20040420, end: 20050506
  5. UNKNOWN [Concomitant]
     Route: 048
     Dates: start: 20040420
  6. ABACAVIR [Concomitant]
     Indication: DRUG USE FOR UNKNOWN INDICATION
  7. BACTRIM [Concomitant]
     Dates: start: 20030701, end: 20050506

REACTIONS (1)
  - PANCYTOPENIA [None]
